FAERS Safety Report 11828579 (Version 3)
Quarter: 2016Q1

REPORT INFORMATION
  Report Type: Spontaneous
  Country: GB (occurrence: GB)
  Receive Date: 20151211
  Receipt Date: 20160105
  Transmission Date: 20160525
  Serious: Yes (Disabling, Other)
  Sender: FDA-Public Use
  Company Number: GB-PFIZER INC-2015429223

PATIENT
  Age: 18 Year
  Sex: Female
  Weight: 69 kg

DRUGS (3)
  1. LORATADINE. [Concomitant]
     Active Substance: LORATADINE
     Dosage: UNK
  2. DEPO-PROVERA [Suspect]
     Active Substance: MEDROXYPROGESTERONE ACETATE
     Indication: INJECTABLE CONTRACEPTION
     Dosage: 1 DF, EVERY 3 MONTHS (EVERY 12 WEEKS)
     Route: 051
     Dates: start: 20130909, end: 20140306
  3. SALBUTAMOL [Concomitant]
     Active Substance: ALBUTEROL
     Dosage: UNK

REACTIONS (15)
  - Asthma [Recovering/Resolving]
  - Pruritus [Unknown]
  - Eczema [Recovering/Resolving]
  - Wheezing [Not Recovered/Not Resolved]
  - Erythema [Unknown]
  - Throat tightness [Unknown]
  - Condition aggravated [Not Recovered/Not Resolved]
  - Condition aggravated [Recovering/Resolving]
  - Dyspnoea [Recovering/Resolving]
  - Dermatitis [Unknown]
  - Condition aggravated [Not Recovered/Not Resolved]
  - Urticaria [Not Recovered/Not Resolved]
  - Eczema infected [Unknown]
  - Food allergy [Not Recovered/Not Resolved]
  - Hypersensitivity [Not Recovered/Not Resolved]

NARRATIVE: CASE EVENT DATE: 20130911
